FAERS Safety Report 26054543 (Version 2)
Quarter: 2025Q4

REPORT INFORMATION
  Report Type: Report from Study
  Country: US (occurrence: US)
  Receive Date: 20251117
  Receipt Date: 20251211
  Transmission Date: 20260118
  Serious: No
  Sender: DR REDDYS
  Company Number: US-DRL-USA-USA/2025/11/016633

PATIENT
  Age: 23 Year
  Sex: Female
  Weight: 59.17 kg

DRUGS (4)
  1. JAVYGTOR [Suspect]
     Active Substance: SAPROPTERIN DIHYDROCHLORIDE
     Indication: Hyperphenylalaninaemia
     Route: 048
     Dates: start: 2024
  2. JAVYGTOR [Suspect]
     Active Substance: SAPROPTERIN DIHYDROCHLORIDE
     Indication: Phenylketonuria
  3. CEFDINIR [Concomitant]
     Active Substance: CEFDINIR
     Indication: Product used for unknown indication
     Dosage: 125 MG/5ML
     Route: 065
  4. RECON [Concomitant]
     Indication: Product used for unknown indication
     Dosage: 125 MG/5ML
     Route: 065

REACTIONS (5)
  - Gastroenteritis viral [Recovering/Resolving]
  - Illness [Recovering/Resolving]
  - Product dose omission issue [Unknown]
  - Overdose [Unknown]
  - Product prescribing error [Unknown]
